FAERS Safety Report 5492063-X (Version None)
Quarter: 2007Q4

REPORT INFORMATION
  Report Type: 
  Country: None (occurrence: None)
  Receive Date: 20071018
  Receipt Date: 20071010
  Transmission Date: 20080405
  Serious: Yes (Death)
  Sender: FDA-Public Use
  Company Number: 430091K07USA

PATIENT
  Age: 45 Year
  Sex: Female

DRUGS (4)
  1. NOVANTRONE [Suspect]
     Indication: MULTIPLE SCLEROSIS
     Dates: start: 20030301, end: 20040924
  2. AVONEX [Concomitant]
  3. COPAXONE [Concomitant]
  4. REBIF [Concomitant]

REACTIONS (4)
  - BACK PAIN [None]
  - CONDITION AGGRAVATED [None]
  - METASTATIC MALIGNANT MELANOMA [None]
  - MUSCULOSKELETAL PAIN [None]
